FAERS Safety Report 12078088 (Version 2)
Quarter: 2016Q1

REPORT INFORMATION
  Report Type: Spontaneous
  Country: US (occurrence: US)
  Receive Date: 20160215
  Receipt Date: 20160309
  Transmission Date: 20160526
  Serious: Yes (Other)
  Sender: FDA-Public Use
  Company Number: US-PFIZER INC-2016079083

PATIENT
  Age: 43 Year
  Sex: Male

DRUGS (6)
  1. BACLOFEN. [Concomitant]
     Active Substance: BACLOFEN
     Indication: MUSCLE SPASTICITY
     Dosage: 10 MG, 2X/DAY
  2. LYRICA [Suspect]
     Active Substance: PREGABALIN
     Dosage: 300 MG, QD
  3. OXYCODONE [Concomitant]
     Active Substance: OXYCODONE
     Indication: PAIN
     Dosage: 15 MG, AS NEEDED (1/2- 1)
     Route: 048
  4. VALINE [Concomitant]
     Active Substance: VALINE
     Indication: ANXIETY
     Dosage: 5 MG, 1X/DAY (1/2 - 1 QHS)
     Route: 048
  5. VALINE [Concomitant]
     Active Substance: VALINE
     Indication: SLEEP DISORDER
  6. LYRICA [Suspect]
     Active Substance: PREGABALIN
     Indication: SPINAL CORD COMPRESSION
     Dosage: 600 MG, QD

REACTIONS (3)
  - Spinal cord injury [Unknown]
  - Impaired driving ability [Unknown]
  - Vision blurred [Recovering/Resolving]
